FAERS Safety Report 23162562 (Version 9)
Quarter: 2024Q3

REPORT INFORMATION
  Report Type: Report from Study
  Country: CA (occurrence: CA)
  Receive Date: 20231109
  Receipt Date: 20240708
  Transmission Date: 20241017
  Serious: Yes (Hospitalization, Other)
  Sender: TAKEDA
  Company Number: CA-TAKEDA-2023TUS041567

PATIENT
  Sex: Male

DRUGS (7)
  1. VEDOLIZUMAB [Suspect]
     Active Substance: VEDOLIZUMAB
     Indication: Crohn^s disease
     Dosage: 300 MILLIGRAM
     Route: 042
     Dates: start: 20220712
  2. VEDOLIZUMAB [Suspect]
     Active Substance: VEDOLIZUMAB
     Indication: Crohn^s disease
     Dosage: 108 MILLIGRAM, Q2WEEKS
     Route: 058
     Dates: start: 20221031
  3. STELARA [Concomitant]
     Active Substance: USTEKINUMAB
     Dosage: UNK
  4. PREDNISONE [Concomitant]
     Active Substance: PREDNISONE
     Indication: Pain
     Dosage: UNK
  5. IMODIUM [Concomitant]
     Active Substance: LOPERAMIDE HYDROCHLORIDE
     Dosage: UNK
  6. FLOMAX [Concomitant]
     Active Substance: TAMSULOSIN HYDROCHLORIDE
     Dosage: UNK
  7. CLARITIN EXTRA [Concomitant]
     Dosage: UNK

REACTIONS (14)
  - Gallbladder disorder [Unknown]
  - Crohn^s disease [Not Recovered/Not Resolved]
  - Liver injury [Unknown]
  - Faeces pale [Unknown]
  - Ocular icterus [Unknown]
  - Malaise [Unknown]
  - Jaundice [Unknown]
  - Weight decreased [Unknown]
  - Blood test abnormal [Unknown]
  - Pancreatic disorder [Unknown]
  - Faeces soft [Unknown]
  - Diarrhoea [Unknown]
  - Anal fissure [Unknown]
  - Arthralgia [Unknown]
